FAERS Safety Report 5732113-6 (Version None)
Quarter: 2008Q2

REPORT INFORMATION
  Report Type: 
  Country: None (occurrence: None)
  Receive Date: 20080506
  Receipt Date: 20080421
  Transmission Date: 20081010
  Serious: Yes (Death)
  Sender: FDA-Public Use
  Company Number: 2008000271

PATIENT
  Age: 57 Year
  Sex: Female

DRUGS (10)
  1. ERLOTINIB (ERLOTINIB HCL) (TABLET) (ERLOTINIB HCL) [Suspect]
     Indication: LUNG ADENOCARCINOMA
     Dosage: (150 MG QD), ORAL
     Route: 048
     Dates: start: 20080115, end: 20080123
  2. PREDNISOLONE [Suspect]
     Indication: DRUG USE FOR UNKNOWN INDICATION
     Dosage: (20 MG, QD), ORAL
     Route: 048
     Dates: end: 20080101
  3. NIFEDIPINE [Concomitant]
  4. LOSARTAN POTASSIUM [Concomitant]
  5. FENOFIBRATE [Concomitant]
  6. DEPAS (ETIZOLAM) [Concomitant]
  7. RABEPRAZOLE SODIUM [Concomitant]
  8. GASMOTIN (MOSAPRIDE CITRATE) [Concomitant]
  9. BASEN (VOGLIBOSE) [Concomitant]
  10. SIMVASTATIN [Concomitant]

REACTIONS (11)
  - FIBRIN D DIMER INCREASED [None]
  - HEPATIC FUNCTION ABNORMAL [None]
  - IMMOBILE [None]
  - INTERSTITIAL LUNG DISEASE [None]
  - NAIL DISORDER [None]
  - NO THERAPEUTIC RESPONSE [None]
  - PULMONARY EMBOLISM [None]
  - PULMONARY HYPERTENSION [None]
  - PULSE ABSENT [None]
  - RENAL IMPAIRMENT [None]
  - SKIN REACTION [None]
